FAERS Safety Report 5276456-1 (Version None)
Quarter: 2007Q1

REPORT INFORMATION
  Report Type: 
  Country: None (occurrence: None)
  Receive Date: 20061213
  Receipt Date: 20040226
  Transmission Date: 20070707
  Serious: No
  Sender: FDA-Public Use
  Company Number: 2004UW03541

PATIENT
  Sex: Female
  Weight: 158.759 kg

DRUGS (1)
  1. SEROQUEL [Suspect]
     Indication: CONVULSION
     Dosage: 100 MG TID PO
     Route: 048

REACTIONS (1)
  - TARDIVE DYSKINESIA [None]
